FAERS Safety Report 5950845-1 (Version None)
Quarter: 2008Q4

REPORT INFORMATION
  Report Type: 
  Country: None (occurrence: None)
  Receive Date: 20081110
  Receipt Date: 20081017
  Transmission Date: 20090506
  Serious: Yes (Disabling)
  Sender: FDA-Public Use
  Company Number: DSA_32438_2008

PATIENT
  Sex: Female

DRUGS (20)
  1. LORAZEPAM [Suspect]
     Indication: ANXIETY
     Dosage: (1 MG TID), (DF), (1 MG 2 TO 3 TIMES DAILY), (DF)
     Dates: start: 20070530, end: 20080401
  2. LORAZEPAM [Suspect]
     Indication: ANXIETY
     Dosage: (1 MG TID), (DF), (1 MG 2 TO 3 TIMES DAILY), (DF)
     Dates: start: 20080401, end: 20080501
  3. LORAZEPAM [Suspect]
     Indication: ANXIETY
     Dosage: (1 MG TID), (DF), (1 MG 2 TO 3 TIMES DAILY), (DF)
     Dates: start: 20000101
  4. LORAZEPAM [Suspect]
     Indication: ANXIETY
     Dosage: (1 MG TID), (DF), (1 MG 2 TO 3 TIMES DAILY), (DF)
     Dates: start: 20050101
  5. LORAZEPAM [Suspect]
     Indication: ANXIETY
     Dosage: (1 MG TID), (DF), (1 MG 2 TO 3 TIMES DAILY), (DF)
     Dates: start: 20060101
  6. ATACAND [Suspect]
     Indication: HYPERTENSION
     Dosage: (4 MG BID)
     Dates: start: 20080509
  7. CATAPRESSAN /00171101/ (CATAPRESSAN - CLONIDINE) (NOT SPECIFIED) [Suspect]
     Indication: DRUG USE FOR UNKNOWN INDICATION
     Dosage: (DF)
  8. IMOVANE (IMOVANE - ZOPICLONE) (NOT SPECIFIED) [Suspect]
     Indication: DRUG USE FOR UNKNOWN INDICATION
     Dosage: (7.5 MG QD)
     Dates: start: 20080703
  9. INDERAL [Suspect]
     Indication: BLOOD PRESSURE INCREASED
     Dosage: SEE IMAGE
     Dates: start: 20060619, end: 20071121
  10. INDERAL [Suspect]
     Indication: TREMOR
     Dosage: SEE IMAGE
     Dates: start: 20060619, end: 20071121
  11. INDERAL [Suspect]
     Indication: BLOOD PRESSURE INCREASED
     Dosage: SEE IMAGE
     Dates: start: 20071122, end: 20080131
  12. INDERAL [Suspect]
     Indication: TREMOR
     Dosage: SEE IMAGE
     Dates: start: 20071122, end: 20080131
  13. INDERAL [Suspect]
     Indication: BLOOD PRESSURE INCREASED
     Dosage: SEE IMAGE
     Dates: start: 20070201, end: 20080507
  14. INDERAL [Suspect]
     Indication: TREMOR
     Dosage: SEE IMAGE
     Dates: start: 20070201, end: 20080507
  15. INDERAL [Suspect]
     Indication: BLOOD PRESSURE INCREASED
     Dosage: SEE IMAGE
     Dates: start: 20080508, end: 20080915
  16. INDERAL [Suspect]
     Indication: TREMOR
     Dosage: SEE IMAGE
     Dates: start: 20080508, end: 20080915
  17. LERGIGAN /00033002/ (LERGIGAN - PROMETHAZINE HYDROCHLORIDE) (NOT SPECI [Suspect]
     Indication: ANXIETY
     Dosage: (25 MG TID)
     Dates: start: 20080722
  18. SELOKENZOC (SELOKEN ZOC - METOPROLOL SUCCINATE) (NOT SPECIFIED) [Suspect]
     Indication: BLOOD PRESSURE INCREASED
     Dosage: (50 MG QD)
     Dates: start: 20061228
  19. DIAZEPAM [Suspect]
     Indication: DRUG USE FOR UNKNOWN INDICATION
     Dosage: (DF)
  20. VOLTAREN [Suspect]
     Indication: DRUG USE FOR UNKNOWN INDICATION
     Dosage: (50 MG PRN)
     Dates: start: 20080424

REACTIONS (6)
  - BLOOD PRESSURE INCREASED [None]
  - DIZZINESS [None]
  - DRUG WITHDRAWAL SYNDROME [None]
  - DYSSTASIA [None]
  - FEELING ABNORMAL [None]
  - WEIGHT DECREASED [None]
